FAERS Safety Report 24681596 (Version 1)
Quarter: 2024Q4

REPORT INFORMATION
  Report Type: Spontaneous
  Country: IN (occurrence: IN)
  Receive Date: 20241130
  Receipt Date: 20241130
  Transmission Date: 20250115
  Serious: Yes (Death, Hospitalization, Other)
  Sender: NOVITIUM PHARMA
  Company Number: IN-NOVITIUMPHARMA-2024INNVP02709

PATIENT
  Age: 50 Year
  Sex: Female

DRUGS (13)
  1. DEXAMETHASONE [Suspect]
     Active Substance: DEXAMETHASONE
     Indication: Enterococcal infection
     Route: 042
  2. DAPSONE [Suspect]
     Active Substance: DAPSONE
     Indication: Pemphigus
  3. TENOFOVIR [Concomitant]
     Active Substance: TENOFOVIR
     Indication: Antiretroviral therapy
     Dates: start: 201408
  4. TENOFOVIR [Concomitant]
     Active Substance: TENOFOVIR
     Dates: start: 202101
  5. LAMIVUDINE [Concomitant]
     Active Substance: LAMIVUDINE
     Indication: Antiretroviral therapy
     Dates: start: 201408
  6. LAMIVUDINE [Concomitant]
     Active Substance: LAMIVUDINE
     Dates: start: 202101
  7. DOLUTEGRAVIR [Concomitant]
     Active Substance: DOLUTEGRAVIR
     Indication: Antiretroviral therapy
     Dates: start: 202101
  8. APREMILAST [Concomitant]
     Active Substance: APREMILAST
     Indication: Pemphigus
     Route: 048
  9. LINEZOLID [Concomitant]
     Active Substance: LINEZOLID
     Indication: Pemphigus
  10. LINEZOLID [Concomitant]
     Active Substance: LINEZOLID
     Indication: Enterococcal infection
  11. MEROPENEM [Concomitant]
     Active Substance: MEROPENEM
     Indication: Enterococcal infection
  12. COTRIMOXAZOLE [Concomitant]
     Active Substance: SULFAMETHOXAZOLE\TRIMETHOPRIM
     Indication: Enterococcal infection
  13. Piperacillin/Tazoactam [Concomitant]
     Indication: Enterococcal infection

REACTIONS (2)
  - Sepsis [Fatal]
  - Treatment noncompliance [Unknown]
